FAERS Safety Report 8395712-1 (Version None)
Quarter: 2012Q2

REPORT INFORMATION
  Report Type: 
  Country: None (occurrence: None)
  Receive Date: 20120525
  Receipt Date: 20120525
  Transmission Date: 20120825
  Serious: No
  Sender: FDA-Public Use
  Company Number: None

PATIENT
  Sex: Female
  Weight: 57.6068 kg

DRUGS (2)
  1. QUETIAPINE [Suspect]
     Indication: MAJOR DEPRESSION
     Dosage: 25MG ONCE QHS PO
     Route: 048
     Dates: start: 20120501
  2. QUETIAPINE [Suspect]
     Indication: MAJOR DEPRESSION
     Dosage: 25MG ONCE QHS PO
     Route: 048
     Dates: start: 20120401

REACTIONS (4)
  - SUICIDAL IDEATION [None]
  - THERAPEUTIC RESPONSE DECREASED [None]
  - PRODUCT SUBSTITUTION ISSUE [None]
  - DEPRESSION [None]
